FAERS Safety Report 10186322 (Version 1)
Quarter: 2014Q2

REPORT INFORMATION
  Report Type: Spontaneous
  Country: US (occurrence: US)
  Receive Date: 20140521
  Receipt Date: 20140521
  Transmission Date: 20141212
  Serious: No
  Sender: FDA-Public Use
  Company Number: US-ASTRAZENECA-2014SE22650

PATIENT
  Age: 41 Year
  Sex: Male
  Weight: 104.3 kg

DRUGS (1)
  1. PULMICORT FLEXAHALER [Suspect]
     Indication: ASTHMA
     Dosage: BID
     Route: 055
     Dates: start: 201307

REACTIONS (10)
  - Weight increased [Unknown]
  - Dysuria [Not Recovered/Not Resolved]
  - Distractibility [Not Recovered/Not Resolved]
  - Urine output decreased [Not Recovered/Not Resolved]
  - Abdominal pain [Not Recovered/Not Resolved]
  - Back pain [Not Recovered/Not Resolved]
  - Pain in extremity [Not Recovered/Not Resolved]
  - Asthenia [Not Recovered/Not Resolved]
  - Gait disturbance [Not Recovered/Not Resolved]
  - Insomnia [Not Recovered/Not Resolved]
